FAERS Safety Report 6621872-6 (Version None)
Quarter: 2010Q1

REPORT INFORMATION
  Report Type: 
  Country: None (occurrence: None)
  Receive Date: 20100223
  Receipt Date: 20091221
  Transmission Date: 20100710
  Serious: No
  Sender: FDA-Public Use
  Company Number: 003766

PATIENT
  Sex: Female

DRUGS (1)
  1. CIMZIA [Suspect]
     Dosage: 400 G 1X/MONTH SUBCUTANEOUS
     Route: 058
     Dates: start: 20090925

REACTIONS (1)
  - SINUSITIS [None]
